FAERS Safety Report 19405840 (Version 2)
Quarter: 2021Q2

REPORT INFORMATION
  Report Type: Report from Study
  Country: BR (occurrence: BR)
  Receive Date: 20210611
  Receipt Date: 20210617
  Transmission Date: 20210717
  Serious: Yes (Other)
  Sender: FDA-Public Use
  Company Number: BR-BRISTOL-MYERS SQUIBB COMPANY-BMS-2021-054912

PATIENT
  Age: 71 Year
  Sex: Female

DRUGS (10)
  1. VITAMIN C [Concomitant]
     Active Substance: ASCORBIC ACID
     Indication: ARTHRITIS
     Route: 065
  2. FAMOTIDINA [Concomitant]
     Indication: ARTHRITIS
     Dosage: 20 MILLIGRAM
     Route: 065
  3. VICOG [Concomitant]
     Active Substance: VINPOCETINE
     Indication: PRODUCT USED FOR UNKNOWN INDICATION
     Dosage: ONE AFTER LUNCH AND ONE AFTER DINNER
     Route: 065
  4. ABATACEPT [Suspect]
     Active Substance: ABATACEPT
     Indication: RHEUMATOID ARTHRITIS
     Dosage: 250 MG 3 VIALS MONTHLY
     Route: 042
  5. VITAMIN D [COLECALCIFEROL] [Concomitant]
     Active Substance: CHOLECALCIFEROL
     Indication: ARTHRITIS
     Route: 065
  6. FOLIC ACID. [Concomitant]
     Active Substance: FOLIC ACID
     Indication: ARTHRITIS
     Dosage: 20 MILLIGRAM
     Route: 065
  7. VITAMIN K2 [MENAQUINONE] [Concomitant]
     Active Substance: MENAQUINONE 6
     Indication: ARTHRITIS
     Dosage: 50 MILLIGRAM
     Route: 065
  8. PREDCORT [Concomitant]
     Indication: ARTHRITIS
     Dosage: 4 MILLIGRAM
     Route: 065
  9. ASPIRIN [ACETYLSALICYLIC ACID] [Concomitant]
     Active Substance: ASPIRIN
     Indication: PRODUCT USED FOR UNKNOWN INDICATION
     Dosage: TWO AFTER LUNCH
     Route: 065
  10. METOTREXATO [METHOTREXATE] [Concomitant]
     Active Substance: METHOTREXATE
     Indication: ARTHRITIS
     Dosage: 15 MILLIGRAM, QWK
     Route: 065

REACTIONS (2)
  - Tremor [Unknown]
  - Cerebrovascular accident [Recovered/Resolved]
